FAERS Safety Report 8261817-9 (Version None)
Quarter: 2012Q2

REPORT INFORMATION
  Report Type: 
  Country: None (occurrence: None)
  Receive Date: 20120405
  Receipt Date: 20120330
  Transmission Date: 20120825
  Serious: Yes (Hospitalization)
  Sender: FDA-Public Use
  Company Number: US-BRISTOL-MYERS SQUIBB COMPANY-16209884

PATIENT
  Age: 70 Year
  Sex: Female
  Weight: 60 kg

DRUGS (13)
  1. CARBOPLATIN [Suspect]
     Indication: NON-SMALL CELL LUNG CANCER
     Dosage: 1DF=AUC=6 ON DAY 1 OF 3 WEEK CYCLE LAST DOSE:23AUG11 AND 27SEP11
     Dates: start: 20110802
  2. FOLIC ACID [Concomitant]
  3. LEVOTHYROXINE SODIUM [Concomitant]
     Dates: start: 19650101
  4. NORTRIPTYLINE HCL [Concomitant]
     Dates: start: 19830101
  5. ATORVASTATIN [Concomitant]
     Dates: start: 20090101
  6. CYANOCOBALAMIN [Concomitant]
  7. PEMETREXED DISODIUM [Suspect]
     Indication: NON-SMALL CELL LUNG CANCER
     Dosage: ON DAY 1 OF 3 WEEK CYCLE LAST DOSE: 27SEP11
     Route: 042
     Dates: start: 20110802
  8. DEXAMETHASONE [Concomitant]
  9. ZESTORETIC [Concomitant]
     Dates: start: 20110101
  10. ASPIRIN [Concomitant]
     Dates: start: 20110809
  11. NITROGLYCERIN [Concomitant]
     Dates: start: 20100201
  12. RAMUCIRUMAB [Suspect]
     Indication: NON-SMALL CELL LUNG CANCER
     Dosage: ON DAY 1 OF 3 WEEK CYCLE
     Route: 042
     Dates: start: 20110802
  13. SENNA [Concomitant]
     Dates: start: 20110621

REACTIONS (3)
  - HYPONATRAEMIA [None]
  - ASTHENIA [None]
  - FALL [None]
